FAERS Safety Report 16724614 (Version 1)
Quarter: 2019Q3

REPORT INFORMATION
  Report Type: Spontaneous
  Country: US (occurrence: US)
  Receive Date: 20190821
  Receipt Date: 20190821
  Transmission Date: 20191005
  Serious: No
  Sender: FDA-Public Use
  Company Number: US-PFIZER INC-2019351858

PATIENT
  Age: 71 Year
  Sex: Female

DRUGS (1)
  1. XELJANZ [Suspect]
     Active Substance: TOFACITINIB CITRATE
     Indication: RHEUMATOID ARTHRITIS
     Dosage: 5 MG, TWICE A DAY
     Route: 048
     Dates: start: 20190519

REACTIONS (5)
  - Rash macular [Unknown]
  - Myalgia [Unknown]
  - Pruritus [Unknown]
  - Antiphospholipid antibodies [Unknown]
  - Alopecia [Unknown]

NARRATIVE: CASE EVENT DATE: 2019
